FAERS Safety Report 7047199-9 (Version None)
Quarter: 2010Q4

REPORT INFORMATION
  Report Type: 
  Country: None (occurrence: None)
  Receive Date: 20101014
  Receipt Date: 20101014
  Transmission Date: 20110411
  Serious: No
  Sender: FDA-Public Use
  Company Number: None

PATIENT
  Age: 19 Year
  Sex: Male
  Weight: 67.1324 kg

DRUGS (1)
  1. CARIMUNE [Suspect]
     Indication: IMMUNODEFICIENCY COMMON VARIABLE
     Dosage: 36 GRAMS EVERY 21 DAYS IV DRIP
     Route: 041

REACTIONS (2)
  - PRODUCT CONTAMINATION PHYSICAL [None]
  - PRODUCT RECONSTITUTION ISSUE [None]
